FAERS Safety Report 6391504-3 (Version None)
Quarter: 2009Q4

REPORT INFORMATION
  Report Type: 
  Country: None (occurrence: None)
  Receive Date: 20091007
  Receipt Date: 20090930
  Transmission Date: 20100525
  Serious: Yes (Hospitalization)
  Sender: FDA-Public Use
  Company Number: US-BRACCO-003155

PATIENT
  Sex: Female
  Weight: 74 kg

DRUGS (10)
  1. OMEPRAZOLE [Concomitant]
     Route: 065
  2. ATENOLOL [Concomitant]
  3. DYAZIDE [Concomitant]
  4. VALIUM [Concomitant]
  5. ASPIRIN [Concomitant]
  6. BARIUM SULFATE [Suspect]
     Indication: COMPUTED TOMOGRAPHIC COLONOGRAPHY
     Route: 048
     Dates: start: 20090707, end: 20090707
  7. BARIUM SULFATE [Suspect]
     Indication: ABDOMINAL PAIN
     Route: 048
     Dates: start: 20090707, end: 20090707
  8. I.V. SOLUTIONS [Concomitant]
     Route: 042
     Dates: start: 20090712
  9. THYROID TAB [Concomitant]
     Route: 065
  10. ZESTRIL [Concomitant]

REACTIONS (3)
  - DEHYDRATION [None]
  - DIZZINESS POSTURAL [None]
  - GASTROENTERITIS [None]
